FAERS Safety Report 8485759 (Version 2)
Quarter: 2012Q4

REPORT INFORMATION
  Report Type: Report from Study
  Country: NL (occurrence: NL)
  Receive Date: 20120330
  Receipt Date: 20120915
  Transmission Date: 20130627
  Serious: Yes (Hospitalization)
  Sender: FDA-Public Use
  Company Number: NL-ABBOTT-12P-114-0918110-08

PATIENT
  Age: 44 Year
  Sex: Female

DRUGS (17)
  1. HUMIRA [Suspect]
     Indication: CROHN^S DISEASE
     Dosage: Induction: 160mg (baseline)
     Route: 058
     Dates: start: 20080930, end: 20080930
  2. HUMIRA [Suspect]
     Dosage: Week 2 80mg
     Route: 058
  3. HUMIRA [Suspect]
     Route: 058
  4. HUMIRA [Suspect]
     Route: 058
     Dates: start: 20081224, end: 20081224
  5. HUMIRA [Suspect]
     Route: 058
     Dates: start: 20081231
  6. HUMIRA [Suspect]
     Route: 058
     Dates: start: 20090128, end: 20090731
  7. QUESTRAN [Concomitant]
     Indication: DIARRHOEA
     Dates: start: 20081230
  8. AZATHIOPRINE [Concomitant]
     Indication: CROHN^S DISEASE
     Dates: start: 20090112
  9. PREDNISONE [Concomitant]
     Indication: CROHN^S DISEASE
     Dosage: 40 mg and tapering
     Dates: end: 200601
  10. PREDNISONE [Concomitant]
     Dates: start: 20090226
  11. LOPERAMIDE [Concomitant]
     Indication: DIARRHOEA
     Dates: start: 20080804
  12. HYDROCOBAMINE [Concomitant]
     Indication: VITAMIN SUPPLEMENTATION
     Dosage: 500mcg/mL
     Dates: start: 20061102
  13. CALCICHEW-D3 [Concomitant]
     Indication: OSTEOPOROSIS
     Dosage: 500mg/400IE
     Dates: start: 20061102
  14. PARACETAMOL [Concomitant]
     Indication: ABDOMINAL PAIN
     Dates: start: 20090310
  15. SODIUM BICARBONATE [Concomitant]
     Indication: OSTEOPOROSIS
     Dates: start: 20110629
  16. VITAMIN D [Concomitant]
     Indication: OSTEOPOROSIS
     Dosage: Drink
     Dates: start: 201011
  17. PARENTERAL FEEDING [Concomitant]
     Indication: CROHN^S DISEASE
     Dosage: Continuous
     Dates: start: 201008

REACTIONS (2)
  - Crohn^s disease [Not Recovered/Not Resolved]
  - Abscess [Not Recovered/Not Resolved]
